FAERS Safety Report 15678802 (Version 1)
Quarter: 2018Q4

REPORT INFORMATION
  Report Type: Spontaneous
  Country: FR (occurrence: FR)
  Receive Date: 20181202
  Receipt Date: 20181202
  Transmission Date: 20190205
  Serious: Yes (Other)
  Sender: FDA-Public Use
  Company Number: PHHY2018FR047284

PATIENT
  Age: 32 Year
  Sex: Female

DRUGS (3)
  1. PREDNISONE. [Suspect]
     Active Substance: PREDNISONE
     Indication: INFERTILITY FEMALE
     Dosage: 10 MG, QD
     Route: 065
  2. ASPIRIN. [Suspect]
     Active Substance: ASPIRIN
     Indication: INFERTILITY FEMALE
     Dosage: 160 MG, QD
     Route: 065
  3. HYDROXYCHLOROQUINE [Suspect]
     Active Substance: HYDROXYCHLOROQUINE
     Indication: INFERTILITY FEMALE
     Dosage: 400 MG, QD
     Route: 065

REACTIONS (6)
  - Abortion threatened [Recovered/Resolved]
  - Intentional product use issue [Recovered/Resolved]
  - Maternal exposure timing unspecified [Unknown]
  - Exposure during pregnancy [Recovered/Resolved]
  - Amenorrhoea [Unknown]
  - Off label use [Recovered/Resolved]
